FAERS Safety Report 6100669-X (Version None)
Quarter: 2009Q1

REPORT INFORMATION
  Report Type: 
  Country: None (occurrence: None)
  Receive Date: 20090303
  Receipt Date: 20090218
  Transmission Date: 20090719
  Serious: Yes (Other)
  Sender: FDA-Public Use
  Company Number: PHHY2009IT07130

PATIENT
  Age: 63 Year
  Sex: Male

DRUGS (7)
  1. CYCLOSPORINE [Suspect]
     Indication: LIVER TRANSPLANT
     Dosage: 175 MG DAILY
  2. CYCLOSPORINE [Suspect]
     Indication: IMMUNOSUPPRESSION
  3. MYCOPHENOLATE MOFETIL [Suspect]
     Indication: IMMUNOSUPPRESSION
  4. MYCOPHENOLATE MOFETIL [Suspect]
     Indication: LIVER TRANSPLANT
  5. STEROIDS NOS [Concomitant]
     Indication: IMMUNOSUPPRESSION
  6. AZATHIOPRINE [Concomitant]
     Indication: IMMUNOSUPPRESSION
     Dosage: 1 MG/KG/DAY
  7. PREDNISONE [Concomitant]
     Indication: IMMUNOSUPPRESSION
     Dosage: 1 MG/KG/DAY

REACTIONS (6)
  - DIARRHOEA [None]
  - HEPATITIS C [None]
  - HYPERAEMIA [None]
  - PRURITUS [None]
  - SERUM FERRITIN INCREASED [None]
  - SKIN EXFOLIATION [None]
